FAERS Safety Report 7747529-6 (Version None)
Quarter: 2011Q3

REPORT INFORMATION
  Report Type: 
  Country: None (occurrence: None)
  Receive Date: 20110913
  Receipt Date: 20110906
  Transmission Date: 20111222
  Serious: Yes (Disabling, Other)
  Sender: FDA-Public Use
  Company Number: US-PFIZER INC-2011201323

PATIENT
  Sex: Female
  Weight: 76.19 kg

DRUGS (8)
  1. ACCUPRIL [Concomitant]
  2. ZOLOFT [Concomitant]
  3. FLEXERIL [Concomitant]
     Dosage: UNK
  4. PREMARIN [Concomitant]
  5. LYRICA [Suspect]
     Indication: FIBROMYALGIA
     Dosage: UNK
     Dates: start: 20060101, end: 20070101
  6. LITHIUM [Concomitant]
     Indication: BIPOLAR DISORDER
  7. LIPITOR [Concomitant]
  8. VICODIN [Concomitant]
     Indication: PAIN

REACTIONS (18)
  - ABASIA [None]
  - HAEMORRHAGE [None]
  - CARDIAC DISORDER [None]
  - HEARING IMPAIRED [None]
  - INFECTION [None]
  - INTESTINAL OBSTRUCTION [None]
  - FAECAL INCONTINENCE [None]
  - HYPERTENSION [None]
  - BLOOD CHOLESTEROL INCREASED [None]
  - VISION BLURRED [None]
  - CONSTIPATION [None]
  - SUICIDAL IDEATION [None]
  - WEIGHT LOSS POOR [None]
  - GASTRIC DISORDER [None]
  - TOXICITY TO VARIOUS AGENTS [None]
  - HAEMORRHOIDS [None]
  - WEIGHT INCREASED [None]
  - URINARY INCONTINENCE [None]
